FAERS Safety Report 8959621 (Version 1)
Quarter: 2012Q4

REPORT INFORMATION
  Report Type: 
  Country: TW (occurrence: TW)
  Receive Date: 20121212
  Receipt Date: 20121212
  Transmission Date: 20130627
  Serious: Yes (Hospitalization)
  Sender: FDA-Public Use
  Company Number: TW-SANOFI-AVENTIS-2012SA090540

PATIENT
  Age: 64 Year
  Sex: Male

DRUGS (18)
  1. OXALIPLATIN [Suspect]
     Indication: ADENOCARCINOMA OF COLON
     Route: 065
  2. OXALIPLATIN [Suspect]
     Indication: LIVER METASTASES
     Route: 065
  3. OXALIPLATIN [Suspect]
     Indication: ADENOCARCINOMA OF COLON
     Route: 065
  4. OXALIPLATIN [Suspect]
     Indication: LIVER METASTASES
     Route: 065
  5. FLUOROURACIL [Concomitant]
     Indication: ADENOCARCINOMA OF COLON
     Dosage: as a FOLFIRI regimen:discontinued after 7 cycles
  6. FLUOROURACIL [Concomitant]
     Indication: LIVER METASTASES
     Dosage: as a FOLFIRI regimen:discontinued after 7 cycles
  7. FLUOROURACIL [Concomitant]
     Indication: ADENOCARCINOMA OF COLON
     Dosage: as a FOLFOX regimen:discontinued after 7 cycles Dose:1.5 gram(s)/square meter
  8. FLUOROURACIL [Concomitant]
     Indication: LIVER METASTASES
     Dosage: as a FOLFOX regimen:discontinued after 7 cycles Dose:1.5 gram(s)/square meter
  9. FLUOROURACIL [Concomitant]
     Indication: ADENOCARCINOMA OF COLON
     Dosage: as a FOLFOX regimen:discontinued after 7 cycles Dose:1.5 gram(s)/square meter
  10. FLUOROURACIL [Concomitant]
     Indication: LIVER METASTASES
     Dosage: as a FOLFOX regimen:discontinued after 7 cycles Dose:1.5 gram(s)/square meter
  11. FOLINIC ACID [Concomitant]
     Indication: LIVER METASTASES
     Dosage: as a FOLFIRI regimen:discontinued after 7 cycles
  12. FOLINIC ACID [Concomitant]
     Indication: ADENOCARCINOMA OF COLON
     Dosage: as a FOLFIRI regimen:discontinued after 7 cycles
  13. FOLINIC ACID [Concomitant]
     Indication: LIVER METASTASES
     Dosage: as a FOLFOX regimen:discontinued after 7 cycles
  14. FOLINIC ACID [Concomitant]
     Indication: ADENOCARCINOMA OF COLON
     Dosage: as a FOLFOX regimen:discontinued after 7 cycles
  15. FOLINIC ACID [Concomitant]
     Indication: LIVER METASTASES
     Dosage: as a FOLFOX regimen:discontinued after 7 cycles
  16. FOLINIC ACID [Concomitant]
     Indication: ADENOCARCINOMA OF COLON
     Dosage: as a FOLFOX regimen:discontinued after 7 cycles
  17. IRINOTECAN [Concomitant]
     Indication: LIVER METASTASES
  18. IRINOTECAN [Concomitant]
     Indication: ADENOCARCINOMA OF COLON

REACTIONS (5)
  - Hyperammonaemic encephalopathy [Recovered/Resolved]
  - Loss of consciousness [Not Recovered/Not Resolved]
  - Cyanosis [Not Recovered/Not Resolved]
  - Heart rate irregular [Recovering/Resolving]
  - Coma [Not Recovered/Not Resolved]
